FAERS Safety Report 7742032-1 (Version None)
Quarter: 2011Q3

REPORT INFORMATION
  Report Type: 
  Country: None (occurrence: None)
  Receive Date: 20110912
  Receipt Date: 20110831
  Transmission Date: 20111222
  Serious: Yes (Other)
  Sender: FDA-Public Use
  Company Number: KR-US-EMD SERONO, INC.-7080630

PATIENT
  Sex: Male

DRUGS (2)
  1. SAIZEN [Suspect]
     Route: 058
  2. SAIZEN [Suspect]
     Indication: GROWTH RETARDATION
     Route: 058
     Dates: start: 20100823

REACTIONS (2)
  - APLASTIC ANAEMIA [None]
  - THROMBOCYTOPENIA [None]
